FAERS Safety Report 15867055 (Version 1)
Quarter: 2019Q1

REPORT INFORMATION
  Report Type: Spontaneous
  Country: US (occurrence: US)
  Receive Date: 20190124
  Receipt Date: 20190124
  Transmission Date: 20190417
  Serious: Yes (Other)
  Sender: FDA-Public Use
  Company Number: None

PATIENT

DRUGS (18)
  1. METFORMIN [Concomitant]
     Active Substance: METFORMIN HYDROCHLORIDE
  2. METOPROLOL. [Concomitant]
     Active Substance: METOPROLOL
  3. TAMSULOSIN [Concomitant]
     Active Substance: TAMSULOSIN
  4. ZOMETA [Concomitant]
     Active Substance: ZOLEDRONIC ACID
  5. PROAIR HFA [Concomitant]
     Active Substance: ALBUTEROL SULFATE
  6. ZOLPIDEM [Concomitant]
     Active Substance: ZOLPIDEM\ZOLPIDEM TARTRATE
  7. OMEPRAZOLE. [Concomitant]
     Active Substance: OMEPRAZOLE
  8. SIMIVASTATIN [Concomitant]
  9. ESBRIET [Suspect]
     Active Substance: PIRFENIDONE
     Indication: IDIOPATHIC PULMONARY FIBROSIS
     Route: 048
     Dates: start: 20150305
  10. CARBOPLATIN. [Concomitant]
     Active Substance: CARBOPLATIN
  11. CYMBALTA [Concomitant]
     Active Substance: DULOXETINE HYDROCHLORIDE
  12. IBUPROFEN. [Concomitant]
     Active Substance: IBUPROFEN
  13. MORPHINE SUL [Concomitant]
     Active Substance: MORPHINE SULFATE
  14. ASPIRIN. [Concomitant]
     Active Substance: ASPIRIN
  15. ETOPOSIDE. [Concomitant]
     Active Substance: ETOPOSIDE
  16. LORAZEPAM. [Concomitant]
     Active Substance: LORAZEPAM
  17. PERCOCET [Concomitant]
     Active Substance: ACETAMINOPHEN\OXYCODONE HYDROCHLORIDE
  18. TUDORZA PRES AER [Concomitant]

REACTIONS (1)
  - General physical health deterioration [None]
